FAERS Safety Report 7170387-8 (Version None)
Quarter: 2010Q4

REPORT INFORMATION
  Report Type: 
  Country: None (occurrence: None)
  Receive Date: 20101217
  Receipt Date: 20101101
  Transmission Date: 20110411
  Serious: No
  Sender: FDA-Public Use
  Company Number: A0889962A

PATIENT
  Sex: Male

DRUGS (3)
  1. PROMACTA [Suspect]
     Route: 048
     Dates: start: 20100501
  2. JANUVIA [Suspect]
     Dates: start: 20100501
  3. CORTICOSTEROID [Concomitant]

REACTIONS (2)
  - DRUG INEFFECTIVE [None]
  - PLATELET COUNT DECREASED [None]
